FAERS Safety Report 5168198-8 (Version None)
Quarter: 2006Q4

REPORT INFORMATION
  Report Type: 
  Country: None (occurrence: None)
  Receive Date: 20061208
  Receipt Date: 20061201
  Transmission Date: 20070319
  Serious: Yes (Hospitalization)
  Sender: FDA-Public Use
  Company Number: US-JNJFOC-20061200803

PATIENT
  Sex: Female
  Weight: 71.22 kg

DRUGS (11)
  1. INFLIXIMAB [Suspect]
     Indication: RHEUMATOID ARTHRITIS
     Route: 042
  2. TOPROL-XL [Concomitant]
  3. PLAVIX [Concomitant]
  4. PROTONIX [Concomitant]
  5. ENALAPRIL MALEATE [Concomitant]
  6. CELEBREX [Concomitant]
  7. SIMVASTIN [Concomitant]
  8. ASPIRIN [Concomitant]
  9. FOLIC ACID [Concomitant]
  10. METHOTREXATE [Concomitant]
  11. MULTI-VITAMIN [Concomitant]

REACTIONS (2)
  - CORONARY ARTERY DISEASE [None]
  - RENAL ARTERY STENT PLACEMENT [None]
